FAERS Safety Report 10414818 (Version 1)
Quarter: 2014Q2

REPORT INFORMATION
  Report Type: Spontaneous
  Country: US (occurrence: None)
  Receive Date: 20140604
  Receipt Date: 20140604
  Transmission Date: 20141212
  Serious: No
  Sender: FDA-Public Use
  Company Number: 163-POMAL-14034286

PATIENT
  Age: 61 Year
  Sex: Male

DRUGS (6)
  1. POMALYST (POMALIDOMIDE) (CAPSULES) [Suspect]
     Indication: PLASMA CELL MYELOMA
     Dosage: 21 IN 21 D
     Route: 048
     Dates: start: 20140210
  2. VITAMIN B12 [Suspect]
  3. MS CONTIN(MORPHINE SULFATE)(UNKNOWN) [Concomitant]
  4. METFORMIN HCL(METFORMIN HYDROCHLORIDE)(UNKNOWN) [Concomitant]
  5. PROTONIX(UNKNOWN)? [Concomitant]
  6. ASPIRIN [Concomitant]

REACTIONS (6)
  - Laboratory test abnormal [None]
  - Haematotoxicity [None]
  - Adverse drug reaction [None]
  - Dehydration [None]
  - Skin exfoliation [None]
  - Fatigue [None]
